FAERS Safety Report 19129566 (Version 3)
Quarter: 2022Q1

REPORT INFORMATION
  Report Type: Spontaneous
  Country: US (occurrence: US)
  Receive Date: 20210413
  Receipt Date: 20220307
  Transmission Date: 20220423
  Serious: Yes (Other)
  Sender: FDA-Public Use
  Company Number: US-NOVOPROD-800750

PATIENT
  Age: 31 Year
  Sex: Male

DRUGS (1)
  1. NOVOLOG [Suspect]
     Active Substance: INSULIN ASPART
     Indication: Product used for unknown indication
     Dosage: UNK
     Route: 058

REACTIONS (2)
  - Blood glucose increased [Not Recovered/Not Resolved]
  - Device leakage [Unknown]

NARRATIVE: CASE EVENT DATE: 20210402
